FAERS Safety Report 11702344 (Version 2)
Quarter: 2016Q1

REPORT INFORMATION
  Report Type: Report from Study
  Country: IL (occurrence: IL)
  Receive Date: 20151105
  Receipt Date: 20160212
  Transmission Date: 20160525
  Serious: Yes (Other)
  Sender: FDA-Public Use
  Company Number: IL-TEVA-605088ISR

PATIENT
  Age: 73 Year
  Sex: Female

DRUGS (9)
  1. COPAXONE [Suspect]
     Active Substance: GLATIRAMER ACETATE
     Indication: MULTIPLE SCLEROSIS
     Dosage: 17.1429 MILLIGRAM DAILY; 40MG
     Route: 058
     Dates: start: 20150201
  2. MAGNESIUM [Concomitant]
     Active Substance: MAGNESIUM
  3. SATIVEX [Concomitant]
     Active Substance: NABIXIMOLS
  4. OMEGA 3 [Concomitant]
     Active Substance: OMEGA-3 FATTY ACIDS
  5. BONDORMIN [Concomitant]
     Active Substance: BROTIZOLAM
  6. GASTRO [Concomitant]
  7. Q10 [Concomitant]
  8. ELTROXIN [Concomitant]
     Active Substance: LEVOTHYROXINE
  9. VITAMINS [Concomitant]
     Active Substance: VITAMINS

REACTIONS (1)
  - Cardiac failure [Not Recovered/Not Resolved]

NARRATIVE: CASE EVENT DATE: 201510
